FAERS Safety Report 16835309 (Version 1)
Quarter: 2019Q3

REPORT INFORMATION
  Report Type: Spontaneous
  Country: US (occurrence: US)
  Receive Date: 20190920
  Receipt Date: 20190920
  Transmission Date: 20191005
  Serious: Yes (Hospitalization)
  Sender: FDA-Public Use
  Company Number: US-ELI_LILLY_AND_COMPANY-US201909005633

PATIENT
  Sex: Female

DRUGS (1)
  1. TRULICITY [Suspect]
     Active Substance: DULAGLUTIDE
     Indication: TYPE 2 DIABETES MELLITUS
     Dosage: 0.75 MG, UNKNOWN
     Route: 058
     Dates: start: 201902

REACTIONS (4)
  - Product dose omission [Unknown]
  - Infection [Recovered/Resolved]
  - Accidental underdose [Recovering/Resolving]
  - Lipoma [Recovering/Resolving]

NARRATIVE: CASE EVENT DATE: 20190816
